FAERS Safety Report 7518650-2 (Version None)
Quarter: 2011Q2

REPORT INFORMATION
  Report Type: 
  Country: None (occurrence: None)
  Receive Date: 20110601
  Receipt Date: 20110601
  Transmission Date: 20111010
  Serious: Yes (Other)
  Sender: FDA-Public Use
  Company Number: None

PATIENT
  Age: 29 Year
  Sex: Female
  Weight: 79.8331 kg

DRUGS (1)
  1. MIRENA [Suspect]
     Dosage: INTRA-UTERINE
     Route: 015
     Dates: start: 20070524, end: 20110502

REACTIONS (8)
  - VERTIGO [None]
  - DEPRESSION [None]
  - ACNE [None]
  - ANXIETY [None]
  - VITREOUS FLOATERS [None]
  - ALOPECIA [None]
  - DIZZINESS [None]
  - PANIC ATTACK [None]
